FAERS Safety Report 18076058 (Version 1)
Quarter: 2020Q3

REPORT INFORMATION
  Report Type: Spontaneous
  Country: US (occurrence: US)
  Receive Date: 20200727
  Receipt Date: 20200727
  Transmission Date: 20201103
  Serious: No
  Sender: FDA-Public Use
  Company Number: US-ABBVIE-20K-163-3414307-00

PATIENT

DRUGS (1)
  1. SYNTHROID [Suspect]
     Active Substance: LEVOTHYROXINE SODIUM
     Indication: HYPOTHYROIDISM
     Route: 048
     Dates: end: 20200520

REACTIONS (8)
  - Dysphonia [Not Recovered/Not Resolved]
  - Feeling abnormal [Recovered/Resolved]
  - Oral discomfort [Recovered/Resolved]
  - Lip swelling [Not Recovered/Not Resolved]
  - Lip swelling [Recovered/Resolved]
  - Expired product administered [Not Recovered/Not Resolved]
  - Product formulation issue [Not Recovered/Not Resolved]
  - Pharyngeal disorder [Recovered/Resolved]

NARRATIVE: CASE EVENT DATE: 202005
